FAERS Safety Report 10418959 (Version 1)
Quarter: 2014Q2

REPORT INFORMATION
  Report Type: Spontaneous
  Country: US (occurrence: None)
  Receive Date: 20140625
  Receipt Date: 20140625
  Transmission Date: 20141212
  Serious: Yes (Hospitalization)
  Sender: FDA-Public Use
  Company Number: A-NJ2014-95946

PATIENT
  Age: 50 Year
  Sex: Male

DRUGS (2)
  1. OPSUMIT [Suspect]
     Indication: PORTOPULMONARY HYPERTENSION
     Route: 048
     Dates: start: 20131210, end: 201402
  2. OXYGEN [Concomitant]

REACTIONS (2)
  - Syncope [None]
  - Dyspnoea [None]
